FAERS Safety Report 6510182-3 (Version None)
Quarter: 2009Q4

REPORT INFORMATION
  Report Type: 
  Country: None (occurrence: None)
  Receive Date: 20091222
  Receipt Date: 20091214
  Transmission Date: 20100525
  Serious: Yes (Life-Threatening, Hospitalization, Disabling)
  Sender: FDA-Public Use
  Company Number: GXKR2008GB03381

PATIENT
  Age: 44 Year
  Sex: Female

DRUGS (2)
  1. MIRTAZAPINE (NGX) [Suspect]
     Indication: DEPRESSION
     Dosage: 45 MG, QID
     Route: 048
     Dates: start: 20080123, end: 20080212
  2. RISPERIDONE (NGX) [Interacting]
     Indication: BIPOLAR DISORDER
     Dosage: 62.5 MG, QW
     Route: 065
     Dates: start: 20071102, end: 20080124

REACTIONS (10)
  - BLOOD PRESSURE FLUCTUATION [None]
  - CONFUSIONAL STATE [None]
  - HYPERHIDROSIS [None]
  - HYPERTHERMIA [None]
  - HYPERTONIA [None]
  - LOSS OF CONSCIOUSNESS [None]
  - NEUROLEPTIC MALIGNANT SYNDROME [None]
  - NUCHAL RIGIDITY [None]
  - PSYCHOMOTOR RETARDATION [None]
  - SEROTONIN SYNDROME [None]
